FAERS Safety Report 15849470 (Version 1)
Quarter: 2019Q1

REPORT INFORMATION
  Report Type: Spontaneous
  Country: DE (occurrence: DE)
  Receive Date: 20190121
  Receipt Date: 20190121
  Transmission Date: 20190417
  Serious: Yes (Other)
  Sender: FDA-Public Use
  Company Number: DE-COLLEGIUM PHARMACEUTICAL, INC.-DE-2018COL013857

PATIENT
  Age: 53 Year
  Sex: Female

DRUGS (7)
  1. DULOXETINE. [Suspect]
     Active Substance: DULOXETINE
     Indication: NEURALGIA
     Dosage: UNK
  2. NALOXONE [Suspect]
     Active Substance: NALOXONE
     Indication: RADICULOPATHY
     Dosage: UNK
  3. NALOXONE [Suspect]
     Active Substance: NALOXONE
     Indication: NEURALGIA
  4. TAPENTADOL HYDROCHLORIDE [Suspect]
     Active Substance: TAPENTADOL HYDROCHLORIDE
     Indication: NEURALGIA
     Dosage: 300 MG, UNK
  5. TILIDINE [Suspect]
     Active Substance: TILIDINE
     Indication: NEURALGIA
     Dosage: UNK
  6. LIDOCAINE. [Suspect]
     Active Substance: LIDOCAINE
     Indication: RADICULOPATHY
     Dosage: UNK
     Route: 061
  7. DULOXETINE. [Suspect]
     Active Substance: DULOXETINE
     Indication: RADICULOPATHY

REACTIONS (3)
  - Cognitive disorder [Unknown]
  - Drug effect incomplete [Unknown]
  - Drug ineffective for unapproved indication [Unknown]
